FAERS Safety Report 24233875 (Version 3)
Quarter: 2024Q4

REPORT INFORMATION
  Report Type: Spontaneous
  Country: US (occurrence: US)
  Receive Date: 20240821
  Receipt Date: 20241120
  Transmission Date: 20250114
  Serious: No
  Sender: DERMAVANT SCIENCES
  Company Number: US-Dermavant-001263

PATIENT
  Sex: Male

DRUGS (1)
  1. VTAMA [Suspect]
     Active Substance: TAPINAROF
     Indication: Psoriasis
     Route: 061

REACTIONS (1)
  - Folliculitis [Recovering/Resolving]
